FAERS Safety Report 7079097-9 (Version None)
Quarter: 2010Q4

REPORT INFORMATION
  Report Type: 
  Country: None (occurrence: None)
  Receive Date: 20101102
  Receipt Date: 20070608
  Transmission Date: 20110411
  Serious: Yes (Hospitalization)
  Sender: FDA-Public Use
  Company Number: JP-NOVOPROD-261737

PATIENT
  Age: 6 Year
  Sex: Male
  Weight: 15 kg

DRUGS (7)
  1. NORDITROPIN NORDIFLEX [Suspect]
     Indication: GROWTH HORMONE DEFICIENCY
     Dosage: 2.45 MG, QW
     Route: 058
     Dates: start: 20051216, end: 20060131
  2. ALFACALCIDOL [Concomitant]
     Dosage: .1 UG, QD
     Dates: start: 20051219
  3. LASIX [Concomitant]
     Dosage: 12 MG, QD
     Route: 048
  4. ALDACTONE [Concomitant]
     Dosage: 12 MG, QD
     Route: 048
  5. RENIVACE [Concomitant]
     Dosage: 1.2 MG, QD
     Route: 048
  6. BICILLIN                           /00000904/ [Concomitant]
     Dosage: 300 MG, QD
     Route: 048
  7. WARFARIN POTASSIUM [Concomitant]
     Dosage: .2 MG, QD
     Route: 048

REACTIONS (1)
  - ENDOCARDITIS [None]
